FAERS Safety Report 25765996 (Version 1)
Quarter: 2025Q3

REPORT INFORMATION
  Report Type: Spontaneous
  Country: US (occurrence: US)
  Receive Date: 20250905
  Receipt Date: 20250905
  Transmission Date: 20251021
  Serious: No
  Sender: DOMPE FARMACEUTICI
  Company Number: US-FARMAPROD-202407-2688

PATIENT
  Sex: Male

DRUGS (25)
  1. OXERVATE [Suspect]
     Active Substance: CENEGERMIN-BKBJ
     Indication: Neurotrophic keratopathy
     Route: 047
     Dates: start: 20240709
  2. OXERVATE [Suspect]
     Active Substance: CENEGERMIN-BKBJ
  3. LYUMJEV [Concomitant]
     Active Substance: INSULIN LISPRO-AABC
  4. MYRBETRIQ [Concomitant]
     Active Substance: MIRABEGRON
  5. TRESIBA [Concomitant]
     Active Substance: INSULIN DEGLUDEC
  6. ATORVASTATIN CALCIUM [Concomitant]
     Active Substance: ATORVASTATIN CALCIUM
  7. CARBAMAZEPINE [Concomitant]
     Active Substance: CARBAMAZEPINE
  8. LOSARTAN POTASSIUM [Concomitant]
     Active Substance: LOSARTAN POTASSIUM
  9. PANTOPRAZOLE SODIUM [Concomitant]
     Active Substance: PANTOPRAZOLE SODIUM
  10. GABAPENTIN [Concomitant]
     Active Substance: GABAPENTIN
  11. METOPROLOL TARTRATE [Concomitant]
     Active Substance: METOPROLOL TARTRATE
  12. METFORMIN HYDROCHLORIDE [Concomitant]
     Active Substance: METFORMIN HYDROCHLORIDE
  13. TAMSULOSIN HYDROCHLORIDE [Concomitant]
     Active Substance: TAMSULOSIN HYDROCHLORIDE
  14. VITAMIN D-400 [Concomitant]
  15. TYLENOL ARTHRITIS PAIN [Concomitant]
     Active Substance: ACETAMINOPHEN
  16. PROBIOTICS NOS [Concomitant]
     Active Substance: PROBIOTICS NOS
  17. FERROUS SULFATE [Concomitant]
     Active Substance: FERROUS SULFATE
  18. CALCIUM [Concomitant]
     Active Substance: CALCIUM
  19. PROLENSA [Concomitant]
     Active Substance: BROMFENAC SODIUM
  20. REFRESH TEARS [Concomitant]
     Active Substance: CARBOXYMETHYLCELLULOSE SODIUM
  21. DORZOLAMIDE\TIMOLOL [Concomitant]
     Active Substance: DORZOLAMIDE\TIMOLOL
  22. PREDNISOLONE-BROMFENAC [Concomitant]
  23. ALPHAGAN P [Concomitant]
     Active Substance: BRIMONIDINE TARTRATE
  24. LATANOPROST [Concomitant]
     Active Substance: LATANOPROST
  25. TIMOLOL MALEATE [Concomitant]
     Active Substance: TIMOLOL MALEATE

REACTIONS (11)
  - Eye pain [Not Recovered/Not Resolved]
  - Superficial injury of eye [Not Recovered/Not Resolved]
  - Lacrimation increased [Not Recovered/Not Resolved]
  - Ocular hyperaemia [Unknown]
  - Photophobia [Not Recovered/Not Resolved]
  - Eyelid pain [Unknown]
  - Swelling of eyelid [Unknown]
  - Eyelid ptosis [Unknown]
  - Vision blurred [Unknown]
  - Product dose omission issue [Unknown]
  - Foreign body sensation in eyes [Unknown]
